FAERS Safety Report 4404789-7 (Version None)
Quarter: 2004Q3

REPORT INFORMATION
  Report Type: 
  Country: None (occurrence: None)
  Receive Date: 20040722
  Receipt Date: 20040628
  Transmission Date: 20050211
  Serious: Yes (Other)
  Sender: FDA-Public Use
  Company Number: PHFR2004GB02675

PATIENT
  Age: 43 Year
  Sex: Female

DRUGS (9)
  1. CLOZARIL [Suspect]
     Indication: SCHIZOAFFECTIVE DISORDER
     Route: 065
     Dates: start: 20030522
  2. CLOZARIL [Suspect]
     Dosage: 725MG/DAY
     Route: 048
     Dates: start: 20040206, end: 20040226
  3. CLOZARIL [Suspect]
     Dosage: 700MG/DAY
     Route: 048
     Dates: start: 20040628, end: 20040706
  4. CLOZARIL [Suspect]
     Dosage: 675MG/DAY
     Route: 048
     Dates: start: 20040707
  5. VALPROATE SODIUM [Suspect]
     Indication: MOOD SWINGS
     Dosage: 600 MG, BID
     Route: 048
  6. SULPIRIDE [Concomitant]
     Dosage: 600MG/DAY
  7. CITALOPRAM [Concomitant]
     Dosage: 40MG/DAY
     Dates: start: 20040525
  8. FOLIC ACID [Concomitant]
     Indication: ANAEMIA
     Dosage: 5MG/DAY
     Route: 048
  9. ATORVASTATIN CALCIUM [Concomitant]
     Indication: HYPERCHOLESTEROLAEMIA
     Route: 048

REACTIONS (3)
  - DRUG INTERACTION [None]
  - DRUG LEVEL INCREASED [None]
  - MYOCLONUS [None]
